FAERS Safety Report 5040080-6 (Version None)
Quarter: 2006Q2

REPORT INFORMATION
  Report Type: 
  Country: None (occurrence: None)
  Receive Date: 20060601
  Receipt Date: 20060105
  Transmission Date: 20061013
  Serious: No
  Sender: FDA-Public Use
  Company Number: 2006PV006594

PATIENT
  Age: 59 Year
  Sex: Female
  Weight: 127.4608 kg

DRUGS (3)
  1. BYETTA [Suspect]
     Indication: DIABETES MELLITUS NON-INSULIN-DEPENDENT
     Dosage: SEE IMAGE, SC
     Route: 058
     Dates: start: 20060104, end: 20060101
  2. BYETTA [Suspect]
     Indication: DIABETES MELLITUS NON-INSULIN-DEPENDENT
     Dosage: SEE IMAGE, SC
     Route: 058
     Dates: start: 20060201
  3. ATENOLOL [Concomitant]

REACTIONS (6)
  - ANOREXIA [None]
  - DRUG EFFECT DECREASED [None]
  - HEADACHE [None]
  - HEART RATE INCREASED [None]
  - NAUSEA [None]
  - WEIGHT DECREASED [None]
